FAERS Safety Report 7712562-7 (Version None)
Quarter: 2011Q3

REPORT INFORMATION
  Report Type: 
  Country: None (occurrence: None)
  Receive Date: 20110822
  Receipt Date: 20110804
  Transmission Date: 20111222
  Serious: Yes (Hospitalization)
  Sender: FDA-Public Use
  Company Number: 2011MA011350

PATIENT
  Age: 35 Year
  Sex: Female

DRUGS (8)
  1. HALOPERIDOL [Suspect]
     Indication: AGITATION
     Dosage: 5 MG;PRN;PO
     Route: 048
  2. PERPHENAZINE [Suspect]
     Indication: SCHIZOPHRENIA
     Dosage: 16 MG;TID;PO
     Route: 048
  3. OLANZAPINE [Suspect]
     Indication: SCHIZOPHRENIA
     Dosage: 20 MG;BID;PO
     Route: 048
  4. RISPERIDONE [Suspect]
     Indication: SCHIZOPHRENIA
     Dosage: 4 MG;TID;PO
     Route: 048
  5. VALPROIC ACID [Suspect]
     Indication: SCHIZOPHRENIA
     Dosage: 1500 MG;HS;PO
     Route: 048
  6. BENZTROPINE MESYLATE [Suspect]
     Indication: EXTRAPYRAMIDAL DISORDER
     Dosage: 1 MG;TID;PO
     Route: 048
  7. BENZTROPINE MESYLATE [Suspect]
     Indication: PROPHYLAXIS
     Dosage: 1 MG;TID;PO
     Route: 048
  8. LITHIUM CARBONATE [Suspect]
     Indication: SCHIZOPHRENIA
     Dosage: 600 MG;BID;PO
     Route: 048

REACTIONS (2)
  - ILEUS PARALYTIC [None]
  - TREATMENT FAILURE [None]
